FAERS Safety Report 8519312-5 (Version None)
Quarter: 2012Q3

REPORT INFORMATION
  Report Type: 
  Country: None (occurrence: None)
  Receive Date: 20120718
  Receipt Date: 20120711
  Transmission Date: 20120928
  Serious: Yes (Other)
  Sender: FDA-Public Use
  Company Number: HU-UCBSA-061506

PATIENT

DRUGS (1)
  1. VIMPAT [Suspect]
     Indication: EPILEPSY
     Route: 048

REACTIONS (3)
  - ORAL HERPES [None]
  - LYMPHADENITIS [None]
  - AFFECTIVE DISORDER [None]
